FAERS Safety Report 8960789 (Version 1)
Quarter: 2012Q4

REPORT INFORMATION
  Report Type: 
  Country: US (occurrence: US)
  Receive Date: 20121212
  Receipt Date: 20121212
  Transmission Date: 20130627
  Serious: No
  Sender: FDA-Public Use
  Company Number: US-PFIZER INC-2012310011

PATIENT
  Age: 25 Year
  Sex: Female
  Weight: 48.53 kg

DRUGS (1)
  1. RAPAMUNE [Suspect]
     Indication: RENAL INSUFFICIENCY
     Dosage: 4 mg, daily
     Dates: start: 201206, end: 201209

REACTIONS (2)
  - Soft tissue inflammation [Unknown]
  - Off label use [Unknown]
